FAERS Safety Report 25631537 (Version 5)
Quarter: 2025Q3

REPORT INFORMATION
  Report Type: Report from Study
  Country: US (occurrence: US)
  Receive Date: 20250801
  Receipt Date: 20250922
  Transmission Date: 20251021
  Serious: Yes (Hospitalization, Other)
  Sender: SANOFI AVENTIS
  Company Number: US-SANOFI-02601298

PATIENT
  Age: 41 Year
  Sex: Male
  Weight: 90.72 kg

DRUGS (3)
  1. FITUSIRAN [Suspect]
     Active Substance: FITUSIRAN
     Indication: Factor VIII deficiency
     Dosage: 50 MG, Q2M
     Route: 058
     Dates: start: 20250703
  2. SEVENFACT [Concomitant]
     Active Substance: COAGULATION FACTOR VIIA RECOMBINANT HUMAN-JNCW
     Indication: Haemorrhage prophylaxis
  3. NOVOSEVEN [Concomitant]
     Active Substance: COAGULATION FACTOR VIIA RECOMBINANT HUMAN

REACTIONS (4)
  - Cholecystitis [Recovering/Resolving]
  - Abdominal pain upper [Unknown]
  - Nausea [Unknown]
  - Vomiting [Unknown]

NARRATIVE: CASE EVENT DATE: 20250101
